FAERS Safety Report 24922641 (Version 1)
Quarter: 2025Q1

REPORT INFORMATION
  Report Type: Spontaneous
  Country: DE (occurrence: DE)
  Receive Date: 20250204
  Receipt Date: 20250204
  Transmission Date: 20250409
  Serious: Yes (Hospitalization, Other)
  Sender: OTSUKA
  Company Number: DE-EMB-M202308426-1

PATIENT
  Sex: Male
  Weight: 3.6 kg

DRUGS (2)
  1. ABILIFY MAINTENA [Suspect]
     Active Substance: ARIPIPRAZOLE
     Indication: Product used for unknown indication
     Route: 064
  2. CYANOCOBALAMIN\FOLIC ACID [Concomitant]
     Active Substance: CYANOCOBALAMIN\FOLIC ACID
     Indication: Prophylaxis of neural tube defect
     Route: 064

REACTIONS (6)
  - Respiratory disorder neonatal [Recovered/Resolved]
  - Neonatal hyponatraemia [Recovered/Resolved]
  - Poor feeding infant [Recovered/Resolved]
  - Temperature regulation disorder [Recovered/Resolved]
  - Pyelocaliectasis [Unknown]
  - Foetal exposure during pregnancy [Unknown]

NARRATIVE: CASE EVENT DATE: 20240601
